FAERS Safety Report 6999890-8 (Version None)
Quarter: 2010Q3

REPORT INFORMATION
  Report Type: 
  Country: None (occurrence: None)
  Receive Date: 20100920
  Receipt Date: 20100723
  Transmission Date: 20110219
  Serious: No
  Sender: FDA-Public Use
  Company Number: US-ASTRAZENECA-2009UW17740

PATIENT
  Age: 47 Year
  Sex: Male
  Weight: 106.6 kg

DRUGS (5)
  1. SEROQUEL [Suspect]
     Indication: INSOMNIA
     Route: 048
     Dates: start: 20040101, end: 20070101
  2. SEROQUEL [Suspect]
     Indication: DEPRESSION
     Route: 048
     Dates: start: 20040101, end: 20070101
  3. PROZAC [Concomitant]
     Dates: start: 20061027
  4. XANAX [Concomitant]
     Dates: start: 20061027
  5. TESTOSTERONE [Concomitant]
     Dates: start: 20061027

REACTIONS (5)
  - BLOOD CHOLESTEROL INCREASED [None]
  - BLOOD TRIGLYCERIDES INCREASED [None]
  - HYPERLIPIDAEMIA [None]
  - OBESITY [None]
  - TYPE 2 DIABETES MELLITUS [None]
